FAERS Safety Report 8619338-7 (Version None)
Quarter: 2012Q3

REPORT INFORMATION
  Report Type: 
  Country: None (occurrence: None)
  Receive Date: 20120810
  Receipt Date: 20120730
  Transmission Date: 20120928
  Serious: Yes (Other)
  Sender: FDA-Public Use
  Company Number: 1208-409

PATIENT
  Sex: Male

DRUGS (1)
  1. EYLEA [Suspect]

REACTIONS (3)
  - EYE INFLAMMATION [None]
  - OCULAR HYPERAEMIA [None]
  - EYE PAIN [None]
